FAERS Safety Report 19655305 (Version 1)
Quarter: 2021Q3

REPORT INFORMATION
  Report Type: Spontaneous
  Country: US (occurrence: US)
  Receive Date: 20210803
  Receipt Date: 20210803
  Transmission Date: 20211014
  Serious: Yes (Other)
  Sender: FDA-Public Use
  Company Number: None

PATIENT
  Age: 87 Year
  Sex: Female
  Weight: 76.2 kg

DRUGS (18)
  1. IMDEVIMAB. [Suspect]
     Active Substance: IMDEVIMAB
     Indication: COVID-19
     Dosage: ?          OTHER FREQUENCY:ONCE;?
     Route: 042
  2. SODIUM CHLORIDE 0.9% IV INFUSION [Concomitant]
     Dates: start: 20210801
  3. MELATONIN 5 MG [Concomitant]
  4. PROBIOTIC GUMMY [Concomitant]
  5. CHOLECALCIFERON 2000 UNITS [Concomitant]
  6. ZOSYN [Concomitant]
     Active Substance: PIPERACILLIN SODIUM\TAZOBACTAM SODIUM
     Dates: start: 20210801
  7. ESCITALOPRAM 20 MG [Concomitant]
     Active Substance: ESCITALOPRAM OXALATE
  8. METOPROLOL TARTRATE 50 MG [Concomitant]
     Active Substance: METOPROLOL TARTRATE
  9. CASIRIVIMAB 120 MG/ML [Suspect]
     Active Substance: CASIRIVIMAB
     Indication: COVID-19
     Dosage: ?          OTHER FREQUENCY:ONCE;?
     Route: 042
  10. CYANOCOBALAMIN 1000 MCG [Concomitant]
     Active Substance: CYANOCOBALAMIN
  11. FUROSEMIDE 20 MG [Concomitant]
     Active Substance: FUROSEMIDE
  12. POTASSIUM CHLORIDE 10 MEQ [Concomitant]
     Active Substance: POTASSIUM CHLORIDE
  13. AZITHROMYCIN 500 MG IV [Concomitant]
     Dates: start: 20210801
  14. APIXABAN 5 MG [Concomitant]
     Active Substance: APIXABAN
  15. ACETAMINOPHEN 1000 MG [Concomitant]
     Dates: start: 20210801
  16. BUSPIRONE [Concomitant]
     Active Substance: BUSPIRONE HYDROCHLORIDE
  17. DEXAMETHASONE 6 MG IV [Concomitant]
     Dates: start: 20210801
  18. ATORVASTATIN 40 MG [Concomitant]
     Active Substance: ATORVASTATIN

REACTIONS (6)
  - Dizziness [None]
  - Asthenia [None]
  - Flushing [None]
  - Palpitations [None]
  - Tachycardia [None]
  - Therapy cessation [None]

NARRATIVE: CASE EVENT DATE: 20210801
